FAERS Safety Report 8386855-7 (Version None)
Quarter: 2012Q2

REPORT INFORMATION
  Report Type: 
  Country: None (occurrence: None)
  Receive Date: 20120525
  Receipt Date: 20120516
  Transmission Date: 20120825
  Serious: Yes (Other)
  Sender: FDA-Public Use
  Company Number: US-B.I. PHARMACEUTICALS,INC./RIDGEFIELD-2012-BP-10993BP

PATIENT
  Sex: Female

DRUGS (5)
  1. TRADJENTA [Suspect]
     Indication: TYPE 2 DIABETES MELLITUS
     Dosage: 10 MG
     Route: 048
     Dates: start: 20120515
  2. TRADJENTA [Suspect]
     Dosage: 5 MG
     Route: 048
  3. MEDICATION NOT FURTHER SPECIFIED [Concomitant]
     Indication: THYROID DISORDER
     Route: 048
  4. GLYBURIDE [Suspect]
     Indication: DIABETES MELLITUS
     Route: 048
     Dates: end: 20120515
  5. MEDICATION NOT FURTHER SPECIFIED [Concomitant]
     Indication: HYPERTENSION
     Dosage: 160 MG
     Route: 048

REACTIONS (11)
  - CHEST PAIN [None]
  - FEELING HOT [None]
  - TINNITUS [None]
  - GAIT DISTURBANCE [None]
  - VISUAL IMPAIRMENT [None]
  - FEELING ABNORMAL [None]
  - DRUG INEFFECTIVE [None]
  - NAUSEA [None]
  - DIZZINESS [None]
  - HEARING IMPAIRED [None]
  - FATIGUE [None]
